FAERS Safety Report 17772320 (Version 1)
Quarter: 2020Q2

REPORT INFORMATION
  Report Type: Spontaneous
  Country: US (occurrence: US)
  Receive Date: 20200512
  Receipt Date: 20200512
  Transmission Date: 20200714
  Serious: No
  Sender: FDA-Public Use
  Company Number: US-NOVOPROD-672287

PATIENT
  Age: 33 Year
  Sex: Male
  Weight: 77.1 kg

DRUGS (1)
  1. NORDITROPIN [Suspect]
     Active Substance: SOMATROPIN
     Indication: GROWTH HORMONE DEFICIENCY
     Dosage: UNK, INTO THE ABDOMEN
     Route: 058
     Dates: start: 20121201, end: 20190624

REACTIONS (1)
  - Hernia [Unknown]
